FAERS Safety Report 4962629-1 (Version None)
Quarter: 2006Q2

REPORT INFORMATION
  Report Type: 
  Country: None (occurrence: None)
  Receive Date: 20060404
  Receipt Date: 20060210
  Transmission Date: 20061013
  Serious: Yes (Hospitalization)
  Sender: FDA-Public Use
  Company Number: US-ABBOTT-06P-163-0324683-00

PATIENT
  Sex: Male
  Weight: 104.5 kg

DRUGS (4)
  1. OMNICEF [Suspect]
     Indication: LOWER RESPIRATORY TRACT INFECTION
     Route: 048
     Dates: start: 20060203, end: 20060208
  2. OMNICEF [Suspect]
     Indication: COUGH
  3. MUCINEX [Concomitant]
     Indication: COUGH
     Dates: start: 20060203
  4. BENZONATATE [Concomitant]
     Indication: COUGH
     Dates: start: 20060209

REACTIONS (9)
  - ABDOMINAL PAIN UPPER [None]
  - ARTHRALGIA [None]
  - BLOOD PRESSURE INCREASED [None]
  - CHEST PAIN [None]
  - DIFFICULTY IN WALKING [None]
  - PAIN IN EXTREMITY [None]
  - POLYNEUROPATHY [None]
  - RASH [None]
  - SKIN LESION [None]
